FAERS Safety Report 8125849 (Version 8)
Quarter: 2018Q3

REPORT INFORMATION
  Report Type: Spontaneous
  Country: FR (occurrence: FR)
  Receive Date: 20110908
  Receipt Date: 20180914
  Transmission Date: 20181010
  Serious: Yes (Hospitalization)
  Sender: FDA-Public Use
  Company Number: FR-SANOFI-AVENTIS-2011SA056509

PATIENT
  Age: 69 Year
  Sex: Male
  Weight: 74 kg

DRUGS (9)
  1. MULTAQ [Suspect]
     Active Substance: DRONEDARONE
     Indication: ATRIAL FIBRILLATION
     Dosage: 400 MG,UNK
     Route: 048
     Dates: start: 20110111, end: 20110131
  2. MULTAQ [Suspect]
     Active Substance: DRONEDARONE
     Dosage: UNK UNK,UNK
     Route: 065
     Dates: start: 20110630, end: 20110812
  3. PENTOXIFYLLINE. [Concomitant]
     Active Substance: PENTOXIFYLLINE
     Dosage: UNK
  4. CARDENSIEL [Concomitant]
     Active Substance: BISOPROLOL FUMARATE
     Dosage: 7.5 MG,QD
     Dates: start: 20110120
  5. CORGARD [Concomitant]
     Active Substance: NADOLOL
     Dosage: UNK
     Dates: start: 201107
  6. CORDARONE [Suspect]
     Active Substance: AMIODARONE HYDROCHLORIDE
     Indication: ATRIAL FIBRILLATION
     Dosage: UNK UNK,UNK
     Route: 048
     Dates: start: 20091005, end: 20110102
  7. PREVISCAN [FLUINDIONE] [Concomitant]
     Active Substance: FLUINDIONE
  8. IMOVANE [Concomitant]
     Active Substance: ZOPICLONE
     Dosage: UNK
  9. CARDENSIEL [Concomitant]
     Active Substance: BISOPROLOL FUMARATE
     Dosage: 7.5 MG
     Dates: start: 201005, end: 201101

REACTIONS (6)
  - Dyspnoea [Recovered/Resolved with Sequelae]
  - Eosinophilia [Recovered/Resolved with Sequelae]
  - Off label use [Unknown]
  - Bronchitis [Recovered/Resolved with Sequelae]
  - Interstitial lung disease [Recovered/Resolved with Sequelae]
  - Interstitial lung disease [Recovered/Resolved with Sequelae]

NARRATIVE: CASE EVENT DATE: 201101
